FAERS Safety Report 23569635 (Version 1)
Quarter: 2024Q1

REPORT INFORMATION
  Report Type: Spontaneous
  Country: GB (occurrence: GB)
  Receive Date: 20240227
  Receipt Date: 20240227
  Transmission Date: 20240409
  Serious: Yes (Other)
  Sender: FDA-Public Use
  Company Number: None

PATIENT
  Sex: Male

DRUGS (5)
  1. TEMAZEPAM [Suspect]
     Active Substance: TEMAZEPAM
     Route: 065
  2. EDOXABAN [Concomitant]
     Active Substance: EDOXABAN
  3. ATORVASTATIN [Concomitant]
     Active Substance: ATORVASTATIN
  4. LISINOPRIL [Concomitant]
     Active Substance: LISINOPRIL
  5. LANSOPRAZOLE [Concomitant]
     Active Substance: LANSOPRAZOLE

REACTIONS (1)
  - Urinary retention [Recovering/Resolving]
